FAERS Safety Report 9161949 (Version 2)
Quarter: 2013Q1

REPORT INFORMATION
  Report Type: Spontaneous
  Country: US (occurrence: None)
  Receive Date: 20130222
  Receipt Date: 20130318
  Transmission Date: 20140127
  Serious: Yes (Other)
  Sender: FDA-Public Use
  Company Number: 2013SGN00082

PATIENT
  Age: 90 Year
  Sex: Male

DRUGS (1)
  1. ADCETRIS (BRENTUXIMAB VEDOTIN) INJECTION [Suspect]
     Indication: PRODUCT USED FOR UNKNOWN INDICATION
     Dosage: 1 UNK
     Dates: start: 20121231, end: 20121231

REACTIONS (5)
  - Renal impairment [None]
  - Weight decreased [None]
  - Dehydration [None]
  - Blood pressure systolic increased [None]
  - Renal failure chronic [None]
